FAERS Safety Report 18033668 (Version 1)
Quarter: 2020Q3

REPORT INFORMATION
  Report Type: Spontaneous
  Country: CA (occurrence: CA)
  Receive Date: 20200716
  Receipt Date: 20200716
  Transmission Date: 20201103
  Serious: Yes (Life-Threatening, Hospitalization, Other)
  Sender: FDA-Public Use
  Company Number: CA-JAZZ-2020-CA-008781

PATIENT
  Age: 9 Year
  Sex: Male

DRUGS (2)
  1. ERWINASE [Suspect]
     Active Substance: ASPARAGINASE ERWINIA CHRYSANTHEMI
     Indication: PRODUCT USED FOR UNKNOWN INDICATION
     Dosage: UNKNOWN DOSE
     Route: 030
  2. ATRIANCE [Concomitant]
     Active Substance: NELARABINE
     Route: 042

REACTIONS (12)
  - Blood pressure increased [Unknown]
  - Confusional state [Unknown]
  - Pain in extremity [Unknown]
  - Ammonia abnormal [Unknown]
  - Blood potassium increased [Unknown]
  - Blood urea nitrogen/creatinine ratio increased [Unknown]
  - Tachycardia [Unknown]
  - Back pain [Unknown]
  - Blood phosphorus increased [Unknown]
  - Lethargy [Unknown]
  - Nausea [Unknown]
  - Abdominal pain [Unknown]
